FAERS Safety Report 12799897 (Version 1)
Quarter: 2016Q3

REPORT INFORMATION
  Report Type: Other
  Country: CA (occurrence: CA)
  Receive Date: 20160930
  Receipt Date: 20160930
  Transmission Date: 20161109
  Serious: Yes (Other)
  Sender: FDA-Public Use
  Company Number: CA-APOTEX-2016AP012377

PATIENT
  Age: 79 Year
  Sex: Male
  Weight: 79.82 kg

DRUGS (1)
  1. PANTOPRAZOLE [Suspect]
     Active Substance: PANTOPRAZOLE SODIUM
     Indication: GASTROOESOPHAGEAL REFLUX DISEASE
     Dosage: 420 MG, UNK
     Route: 048

REACTIONS (2)
  - Spinal compression fracture [Unknown]
  - Pain [Unknown]
